FAERS Safety Report 5915981-4 (Version None)
Quarter: 2008Q4

REPORT INFORMATION
  Report Type: 
  Country: None (occurrence: None)
  Receive Date: 20081009
  Receipt Date: 20081009
  Transmission Date: 20090506
  Serious: No
  Sender: FDA-Public Use
  Company Number: None

PATIENT
  Sex: Female
  Weight: 60.3284 kg

DRUGS (1)
  1. MIRENA [Suspect]
     Dosage: MIRENA IUS
     Dates: start: 20080910

REACTIONS (2)
  - URINARY TRACT INFECTION [None]
  - UTERINE RUPTURE [None]
